FAERS Safety Report 16994131 (Version 1)
Quarter: 2019Q4

REPORT INFORMATION
  Report Type: Spontaneous
  Country: US (occurrence: US)
  Receive Date: 20191105
  Receipt Date: 20191105
  Transmission Date: 20200122
  Serious: No
  Sender: FDA-Public Use
  Company Number: US-LEXICON PHARMACEUTICALS, INC-19-1606-00978

PATIENT
  Sex: Female
  Weight: 45.4 kg

DRUGS (9)
  1. TRIAMTERENE. [Concomitant]
     Active Substance: TRIAMTERENE
  2. SOMATOSTATIN [Suspect]
     Active Substance: SOMATOSTATIN
     Dosage: IR
     Dates: start: 201901
  3. PANTOPRAZOLE [Concomitant]
     Active Substance: PANTOPRAZOLE
  4. XANAX [Concomitant]
     Active Substance: ALPRAZOLAM
  5. METOPROLOL. [Concomitant]
     Active Substance: METOPROLOL
  6. MULTI-VITAMIN [Concomitant]
     Active Substance: .ALPHA.-TOCOPHEROL ACETATE, DL-\ASCORBIC ACID\CYANOCOBALAMIN\FLUORIDE ION\FOLIC ACID\NIACIN\PYRIDOXINE\RIBOFLAVIN\THIAMINE\VITAMIN A\VITAMIN D
  7. VITAMIN B12 [Concomitant]
     Active Substance: CYANOCOBALAMIN
  8. XERMELO [Suspect]
     Active Substance: TELOTRISTAT ETHYL
     Indication: CARCINOID SYNDROME
     Route: 048
  9. SOMATOSTATIN [Suspect]
     Active Substance: SOMATOSTATIN
     Dates: start: 2019

REACTIONS (2)
  - Diarrhoea [Not Recovered/Not Resolved]
  - Weight decreased [Not Recovered/Not Resolved]
